FAERS Safety Report 11069116 (Version 1)
Quarter: 2015Q2

REPORT INFORMATION
  Report Type: Report from Study
  Country: FR (occurrence: FR)
  Receive Date: 20150427
  Receipt Date: 20150427
  Transmission Date: 20150821
  Serious: Yes (Hospitalization, Other)
  Sender: FDA-Public Use
  Company Number: PHHY2015FR048259

PATIENT
  Age: 68 Year
  Sex: Male

DRUGS (2)
  1. NEORAL [Suspect]
     Active Substance: CYCLOSPORINE
     Indication: TRANSPLANT REJECTION
     Dosage: 100 MG, QD
     Route: 048
     Dates: start: 20150311
  2. CERTICAN [Suspect]
     Active Substance: EVEROLIMUS
     Indication: TRANSPLANT REJECTION
     Dosage: 0.70 MG, QD
     Route: 048

REACTIONS (2)
  - Herpes zoster [Recovered/Resolved]
  - Cholelithiasis [Not Recovered/Not Resolved]

NARRATIVE: CASE EVENT DATE: 20150317
